FAERS Safety Report 7420712-5 (Version None)
Quarter: 2011Q2

REPORT INFORMATION
  Report Type: 
  Country: None (occurrence: None)
  Receive Date: 20110418
  Receipt Date: 20090619
  Transmission Date: 20111010
  Serious: Yes (Hospitalization, Other)
  Sender: FDA-Public Use
  Company Number: US-BAYER-200924130NA

PATIENT
  Age: 66 Year
  Sex: Male
  Weight: 70 kg

DRUGS (36)
  1. TRASYLOL [Suspect]
     Indication: MITRAL VALVE REPAIR
     Dosage: 200 MG, ONCE
     Route: 042
     Dates: start: 20030124, end: 20030124
  2. SIMVASTATIN [Concomitant]
     Dosage: 40 MG, QD
     Route: 048
  3. ATROPINE [Concomitant]
     Dosage: UNK
     Route: 042
     Dates: start: 20030124, end: 20030124
  4. PROTAMINE SULFATE [Concomitant]
     Dosage: 250 MG, UNK
     Route: 042
     Dates: start: 20030124, end: 20030124
  5. TRASYLOL [Suspect]
     Indication: CORONARY ARTERY BYPASS
     Dosage: 1 ML, ONCE
     Route: 042
     Dates: start: 20030124, end: 20030124
  6. METOPROLOL [Concomitant]
     Dosage: 25 MG, BID
     Route: 048
  7. MIDAZOLAM [Concomitant]
     Dosage: 2 MG, BOLUS CONTINUOUSLY
     Route: 042
     Dates: start: 20030124, end: 20030124
  8. ETOMIDATE [Concomitant]
     Dosage: UNK
     Route: 042
     Dates: start: 20030124, end: 20030124
  9. PLATELETS [Concomitant]
     Dosage: 3 U, UNK
     Dates: start: 20030124, end: 20030124
  10. FERROUS GLUCONATE [Concomitant]
     Dosage: 300 MG, BID
     Route: 048
  11. VECURONIUM BROMIDE [Concomitant]
     Dosage: UNK
     Route: 042
     Dates: start: 20030124, end: 20030124
  12. CEFUROXIME [Concomitant]
     Dosage: UNK
     Route: 042
     Dates: start: 20030124, end: 20030124
  13. QUININE SULFATE [Concomitant]
     Dosage: 260 MG, HS
     Route: 048
  14. BACITRACIN [Concomitant]
     Dosage: 25000 U, UNK
     Route: 061
     Dates: start: 20030124, end: 20030124
  15. RED BLOOD CELLS [Concomitant]
     Dosage: 1 U, UNK
     Dates: start: 20030124, end: 20030124
  16. ACETYLSALICYLIC ACID SRT [Concomitant]
     Dosage: 325 MG, QD
     Route: 048
  17. LASIX [Concomitant]
     Dosage: 40 MG, UNK
     Route: 042
  18. FENTANYL [Concomitant]
     Dosage: 100 MCG/HR, UNK
     Route: 042
     Dates: start: 20030124
  19. PAPAVERINE [Concomitant]
     Dosage: 2 ML, UNK
     Dates: start: 20030124, end: 20030124
  20. PLATELETS [Concomitant]
  21. TRASYLOL [Suspect]
     Dosage: 50CC-100CC/HR, UNK
     Route: 042
     Dates: start: 20030124, end: 20030124
  22. MILRINONE [Concomitant]
     Dosage: UNK
     Route: 042
     Dates: start: 20030124
  23. PLASMALYTE [GLUCOSE,POTASSIUM CHLORIDE] [Concomitant]
     Dosage: UNK
     Dates: start: 20030124, end: 20030124
  24. RED BLOOD CELLS [Concomitant]
     Dosage: 4 U, UNK
     Dates: start: 20030124, end: 20030124
  25. FRESH FROZEN PLASMA [Concomitant]
     Dosage: 3 U, UNK
     Dates: start: 20030124, end: 20030124
  26. OPTIRAY 350 [Concomitant]
     Dosage: 130 ML, UNK
     Dates: start: 20030117
  27. AUGMENTIN [Concomitant]
     Dosage: 2 TABS, BID
     Route: 048
  28. COLACE [Concomitant]
     Dosage: 100 MG, QD
     Route: 048
  29. HUMIBID L.A. [Concomitant]
     Dosage: 1200 MG, BID
  30. EPINEPHRINE [Concomitant]
     Dosage: 0.5 MCG/MIN, UNK
     Route: 042
     Dates: start: 20030124
  31. HEPARIN [Concomitant]
     Dosage: UNK
     Dates: start: 20030124, end: 20030124
  32. CEFAZOLIN [Concomitant]
     Dosage: 1 G, UNK
     Dates: start: 20030124, end: 20030124
  33. ENALAPRIL [Concomitant]
     Dosage: 2.5 MG, QD
     Route: 048
     Dates: start: 20030116
  34. THROMBIN LOCAL SOLUTION [Concomitant]
     Dosage: 20,000 UNK, UNK
     Route: 061
     Dates: start: 20030124, end: 20030124
  35. FRESH FROZEN PLASMA [Concomitant]
     Dosage: 3 U, UNK
     Dates: start: 20030124, end: 20030124
  36. ALDACTONE [Concomitant]
     Route: 048

REACTIONS (12)
  - MULTI-ORGAN FAILURE [None]
  - RENAL FAILURE [None]
  - RENAL INJURY [None]
  - UNEVALUABLE EVENT [None]
  - PAIN [None]
  - EMOTIONAL DISTRESS [None]
  - ANXIETY [None]
  - FEAR [None]
  - RENAL IMPAIRMENT [None]
  - STRESS [None]
  - INJURY [None]
  - ANHEDONIA [None]
